FAERS Safety Report 19020770 (Version 1)
Quarter: 2021Q1

REPORT INFORMATION
  Report Type: Spontaneous
  Country: US (occurrence: US)
  Receive Date: 20210317
  Receipt Date: 20210317
  Transmission Date: 20210420
  Serious: Yes (Other)
  Sender: FDA-Public Use
  Company Number: US-BAYER-2021-103984

PATIENT
  Sex: Male

DRUGS (4)
  1. PREDNISONE. [Suspect]
     Active Substance: PREDNISONE
  2. LUPRON [Concomitant]
     Active Substance: LEUPROLIDE ACETATE
  3. ZYTIGA [Concomitant]
     Active Substance: ABIRATERONE ACETATE
  4. NUBEQA [Suspect]
     Active Substance: DAROLUTAMIDE
     Indication: PRODUCT USED FOR UNKNOWN INDICATION

REACTIONS (3)
  - Dementia [Unknown]
  - Hepatic enzyme increased [Unknown]
  - Delirium [Unknown]
